FAERS Safety Report 8815764 (Version 2)
Quarter: 2012Q4

REPORT INFORMATION
  Report Type: 
  Country: FR (occurrence: FR)
  Receive Date: 20120928
  Receipt Date: 20121010
  Transmission Date: 20130627
  Serious: Yes (Hospitalization)
  Sender: FDA-Public Use
  Company Number: FR-B.I. PHARMACEUTICALS,INC./RIDGEFIELD-2012-FF-01297FF

PATIENT
  Age: 77 None
  Sex: Male
  Weight: 80 kg

DRUGS (11)
  1. PRADAXA [Suspect]
     Indication: ATRIAL FIBRILLATION
     Dosage: 220 mg
     Route: 048
     Dates: start: 201206, end: 201209
  2. PRADAXA [Suspect]
     Dosage: 150 mg
     Route: 048
     Dates: start: 201209
  3. PLAVIX [Concomitant]
  4. KARDEGIC [Concomitant]
  5. CORDARONE [Concomitant]
  6. ZOLADEX [Concomitant]
  7. KREDEX [Concomitant]
  8. LOPRIL [Concomitant]
  9. LASILIX [Concomitant]
  10. ZYLORIC [Concomitant]
  11. LIPANTHYL [Concomitant]

REACTIONS (4)
  - Anaemia [Recovered/Resolved]
  - Gastrointestinal haemorrhage [Not Recovered/Not Resolved]
  - Gastrointestinal angiodysplasia [Unknown]
  - Asthenia [Recovered/Resolved]
